FAERS Safety Report 25992237 (Version 3)
Quarter: 2025Q4

REPORT INFORMATION
  Report Type: Spontaneous
  Country: US (occurrence: US)
  Receive Date: 20251103
  Receipt Date: 20251111
  Transmission Date: 20260118
  Serious: No
  Sender: SANOFI AVENTIS
  Company Number: US-SA-2025SA320345

PATIENT
  Age: 79 Year
  Sex: Female

DRUGS (7)
  1. DUPIXENT [Suspect]
     Active Substance: DUPILUMAB
     Indication: Dermatitis atopic
     Dosage: 600 MG, 1X
     Route: 058
     Dates: start: 202510, end: 202510
  2. DUPIXENT [Suspect]
     Active Substance: DUPILUMAB
     Dosage: 300 MG, QOW
     Route: 058
     Dates: start: 2025
  3. ONDANSETRON [Concomitant]
     Active Substance: ONDANSETRON
  4. TRIAMCINOLONE [Concomitant]
     Active Substance: TRIAMCINOLONE
  5. FLUCONAZOLE [Concomitant]
     Active Substance: FLUCONAZOLE
  6. DOXYCYCLINE [Concomitant]
     Active Substance: DOXYCYCLINE
  7. HYDROCODONE [Concomitant]
     Active Substance: HYDROCODONE

REACTIONS (5)
  - Paraesthesia oral [Not Recovered/Not Resolved]
  - Lip discolouration [Unknown]
  - Ocular hyperaemia [Unknown]
  - Vision blurred [Not Recovered/Not Resolved]
  - Hypersensitivity [Unknown]

NARRATIVE: CASE EVENT DATE: 20250101
